FAERS Safety Report 7444915-9 (Version None)
Quarter: 2011Q2

REPORT INFORMATION
  Report Type: 
  Country: None (occurrence: None)
  Receive Date: 20110427
  Receipt Date: 20110427
  Transmission Date: 20111010
  Serious: Yes (Hospitalization, Other)
  Sender: FDA-Public Use
  Company Number: None

PATIENT
  Age: 46 Year
  Sex: Female
  Weight: 63.5036 kg

DRUGS (2)
  1. LUPRON DEPOT [Suspect]
     Indication: ENDOMETRIOSIS
     Dates: start: 20101016, end: 20101117
  2. NORETHINDRONE ACETATE [Suspect]
     Indication: UTERINE LEIOMYOMA

REACTIONS (8)
  - MEMORY IMPAIRMENT [None]
  - VISION BLURRED [None]
  - WEIGHT INCREASED [None]
  - VISUAL IMPAIRMENT [None]
  - ECONOMIC PROBLEM [None]
  - MIGRAINE [None]
  - AFFECTIVE DISORDER [None]
  - PAIN [None]
